FAERS Safety Report 9416124 (Version 2)
Quarter: 2013Q3

REPORT INFORMATION
  Report Type: Spontaneous
  Country: US (occurrence: None)
  Receive Date: 20130717
  Receipt Date: 20130930
  Transmission Date: 20140515
  Serious: Yes (Hospitalization)
  Sender: FDA-Public Use
  Company Number: 2013-0761

PATIENT
  Age: 69 Year
  Sex: Female

DRUGS (22)
  1. KYPROLIS (CARFILZOMIB) (INJECTION FOR INFUSION) (CARFILZOMIB) [Suspect]
     Indication: PLASMA CELL MYELOMA
     Dosage: 10.1143 MG (35.4 MG, 2 IN 1 WK), INTRAVENOUS
     Route: 042
     Dates: start: 20130314
  2. REVLIMID (LENALIDOMIDE) (LENALIDOMIDE) [Concomitant]
  3. DEXAMETHASONE (DEXAMETHASONE) (DEXAMETHASONE) [Concomitant]
  4. PRILOSEC (OMEPRAZOLE) (OMEPRAZOLE) [Concomitant]
  5. REGLAN(METOCLOPRAMIDB)(METOCLOPRAMIDB) [Concomitant]
  6. POTASSIUM(POTASSIUM)(POTASSIUM) [Concomitant]
  7. GABAPENTIN(GABAPENTIN)(GABAPENTIN) [Concomitant]
  8. IMODIUM(LOPERAMIDE HYDROCHLORIDE)(LOPERAMIDE HYDROCHLORIDE) [Concomitant]
  9. FENTANYL (FENTANYL) (FENTANYL) [Concomitant]
  10. PROCHLORPERAZINE(PROCHLORPERAZINE)(PROCHLORPERAZINE) [Concomitant]
  11. ACYCLOVIR(ACICLOVIR)(ACICLOVIR) [Concomitant]
  12. BUTALBITAL/ACETOMINOPHEN/CAFFEINE(CODEINE PHOSPHATE, CAFFEINE, BUTALBITAL, PARACETAMOL)(CODEINE PHOSPHATE CAFFEINE, BUTALBITAL, PARACETAMOL) [Concomitant]
  13. EMLA CREAM(LIDOCAINE, PRILOCAINE)(LIDOCAINE, PRILOCAINE) [Concomitant]
  14. HYDROCHLOROTHIAZIDE(HYDROCHLOROTHIAZIDE)(HYDROCHLORO HIAZIDE) [Concomitant]
  15. AMOXICILLIN(AMOXICILLIN)(AMOXICILLIN) [Concomitant]
  16. VICODIN(PARACETAMOL, HYDROCODONE BITARTRATE)(PARACETAMOL, HYDROCODONE BITARTRATE) [Concomitant]
  17. PROTONIX(PANTOPRAZOLE SODIUM SESQUIHYDRATE)(PANTOPRAZOLE SODIUM SESQUIHYDRATE) [Concomitant]
  18. ONDANSETRON(ONDANSETRON)(ONDANSETRON) [Concomitant]
  19. CREON(PANCREATIN)(PANCREATIN) [Concomitant]
  20. CALCIUM SUPPLEMENT(CALCIUM)(CALCIUM) [Concomitant]
  21. ASPIRIN(ACETYLSALICYLIC ACID)(ACETYLSALICYLIC ACID) [Concomitant]
  22. LORAZEPAM (LORAZEPAM) (LORAZEPAM) [Concomitant]

REACTIONS (13)
  - Diarrhoea [None]
  - Fatigue [None]
  - Loss of consciousness [None]
  - Asthenia [None]
  - Dizziness [None]
  - Tremor [None]
  - Vomiting [None]
  - Weight decreased [None]
  - Aortitis [None]
  - Tachycardia [None]
  - Immune system disorder [None]
  - Aortic aneurysm [None]
  - Condition aggravated [None]
